FAERS Safety Report 8021652-3 (Version None)
Quarter: 2012Q1

REPORT INFORMATION
  Report Type: 
  Country: None (occurrence: None)
  Receive Date: 20120104
  Receipt Date: 20110826
  Transmission Date: 20120608
  Serious: No
  Sender: FDA-Public Use
  Company Number: US-PFIZER INC-K201100992

PATIENT
  Sex: Female
  Weight: 111.57 kg

DRUGS (2)
  1. INTAL [Suspect]
     Indication: ASTHMA
     Dosage: UNK
     Route: 055
  2. VENTOLIN HFA [Concomitant]
     Indication: ASTHMA
     Dosage: UNK

REACTIONS (1)
  - ASTHMA [None]
